FAERS Safety Report 11302024 (Version 1)
Quarter: 2015Q3

REPORT INFORMATION
  Report Type: Spontaneous
  Country: US (occurrence: None)
  Receive Date: 20150723
  Receipt Date: 20150723
  Transmission Date: 20151125
  Serious: No
  Sender: FDA-Public Use
  Company Number: None

PATIENT
  Age: 68 Year
  Sex: Female
  Weight: 211 kg

DRUGS (7)
  1. OMERGOL [Concomitant]
  2. CRESTOR [Concomitant]
     Active Substance: ROSUVASTATIN CALCIUM
  3. SPIRNOLACTONE [Concomitant]
  4. BABY ASPIRIN [Concomitant]
     Active Substance: ASPIRIN
  5. TIKOSYN [Suspect]
     Active Substance: DOFETILIDE
     Indication: ARRHYTHMIA
     Dosage: 9 AM?9 PM
     Route: 048
     Dates: start: 20150509
  6. WAFAN [Concomitant]
  7. LOSARTAN. [Concomitant]
     Active Substance: LOSARTAN

REACTIONS (13)
  - Muscle spasms [None]
  - Activities of daily living impaired [None]
  - Decreased appetite [None]
  - Insomnia [None]
  - Vision blurred [None]
  - Malaise [None]
  - Dysgeusia [None]
  - Dehydration [None]
  - Dizziness [None]
  - Dry mouth [None]
  - Nausea [None]
  - Asthenia [None]
  - Unevaluable event [None]

NARRATIVE: CASE EVENT DATE: 20150620
